FAERS Safety Report 7200853-8 (Version None)
Quarter: 2010Q4

REPORT INFORMATION
  Report Type: 
  Country: None (occurrence: None)
  Receive Date: 20101228
  Receipt Date: 20101216
  Transmission Date: 20110411
  Serious: Yes (Hospitalization)
  Sender: FDA-Public Use
  Company Number: FR-PFIZER INC-2010178234

PATIENT
  Age: 86 Year
  Sex: Male

DRUGS (11)
  1. CORDARONE [Suspect]
     Dosage: 200 MG, UNK
  2. MODOPAR [Suspect]
     Indication: PARKINSON'S DISEASE
     Dosage: UNK
  3. PREVISCAN [Suspect]
     Dosage: UNK
  4. PERMIXON [Concomitant]
     Dosage: UNK
  5. INFLUENZA VACCINE [Concomitant]
     Dosage: UNK
     Dates: start: 20101124, end: 20101124
  6. XATRAL [Concomitant]
     Dosage: UNK
     Dates: end: 20101116
  7. ACTONEL [Concomitant]
     Dosage: UNK
  8. TRIMEBUTINE [Concomitant]
  9. OROCAL [Concomitant]
  10. FORLAX [Concomitant]
  11. LASIX [Concomitant]
     Dosage: UNK
     Dates: end: 20101109

REACTIONS (3)
  - AGRANULOCYTOSIS [None]
  - LUNG DISORDER [None]
  - SEPTIC SHOCK [None]
